FAERS Safety Report 8263428-8 (Version None)
Quarter: 2012Q2

REPORT INFORMATION
  Report Type: 
  Country: None (occurrence: None)
  Receive Date: 20120405
  Receipt Date: 20120327
  Transmission Date: 20120825
  Serious: Yes (Hospitalization)
  Sender: FDA-Public Use
  Company Number: DE-PFIZER INC-2012062803

PATIENT
  Age: 79 Year
  Sex: Male
  Weight: 85 kg

DRUGS (2)
  1. SUNITINIB MALATE [Suspect]
     Indication: MALIGNANT MELANOMA
     Dosage: 50 MG, 1X/DAY, 4 WEEKS TREATMENT, 2 WEEKS PAUSE
     Route: 048
     Dates: start: 20120202, end: 20120229
  2. SUNITINIB MALATE [Suspect]
     Dosage: 37.5 MG, 1X/DAY
     Route: 048
     Dates: start: 20120321

REACTIONS (4)
  - DEHYDRATION [None]
  - GENERAL PHYSICAL HEALTH DETERIORATION [None]
  - DIARRHOEA [None]
  - INFECTION [None]
